FAERS Safety Report 5563774-2 (Version None)
Quarter: 2007Q4

REPORT INFORMATION
  Report Type: 
  Country: None (occurrence: None)
  Receive Date: 20071217
  Receipt Date: 20070810
  Transmission Date: 20080405
  Serious: No
  Sender: FDA-Public Use
  Company Number: US-ASTRAZENECA-2007UW19441

PATIENT
  Age: 57 Year
  Sex: Female
  Weight: 65.8 kg

DRUGS (4)
  1. CRESTOR [Suspect]
     Indication: DYSLIPIDAEMIA
     Route: 048
     Dates: start: 20070803
  2. RESTASIS [Concomitant]
     Indication: DRY EYE
  3. ESTRACE [Concomitant]
  4. PROGESTERONE [Concomitant]

REACTIONS (3)
  - CONSTIPATION [None]
  - DRY EYE [None]
  - FATIGUE [None]
